FAERS Safety Report 13354198 (Version 3)
Quarter: 2021Q2

REPORT INFORMATION
  Report Type: Spontaneous
  Country: US (occurrence: US)
  Receive Date: 20170321
  Receipt Date: 20210517
  Transmission Date: 20210716
  Serious: Yes (Life-Threatening, Hospitalization, Other)
  Sender: FDA-Public Use
  Company Number: US-AUROBINDO-AUR-APL-2017-31232

PATIENT
  Age: 15 Year
  Sex: Female

DRUGS (3)
  1. SERTRALINE HYDROCHLORIDE TABLETS 25MG [Suspect]
     Active Substance: SERTRALINE HYDROCHLORIDE
     Dosage: 375 MILLIGRAM(1 TOTAL)
     Route: 048
  2. SERTRALINE HYDROCHLORIDE TABLETS 25MG [Suspect]
     Active Substance: SERTRALINE HYDROCHLORIDE
     Indication: PRODUCT USED FOR UNKNOWN INDICATION
     Dosage: 25 MG, FIFTEEN 25?MG SERTRALINE TABLETS
     Route: 048
  3. LORATADINE. [Concomitant]
     Active Substance: LORATADINE
     Indication: PRODUCT USED FOR UNKNOWN INDICATION
     Route: 048

REACTIONS (9)
  - Sinus tachycardia [Recovered/Resolved]
  - Chest pain [Recovered/Resolved]
  - Electrocardiogram QT prolonged [Recovered/Resolved]
  - Ventricular dysfunction [Recovered/Resolved]
  - Stress cardiomyopathy [Recovered/Resolved]
  - Electrocardiogram ST segment depression [Recovered/Resolved]
  - Suicide attempt [Recovered/Resolved]
  - Intentional overdose [Recovered/Resolved]
  - Ejection fraction [Recovered/Resolved]
